FAERS Safety Report 10416912 (Version 1)
Quarter: 2014Q3

REPORT INFORMATION
  Report Type: Spontaneous
  Country: GB (occurrence: GB)
  Receive Date: 20140828
  Receipt Date: 20140828
  Transmission Date: 20150326
  Serious: Yes (Hospitalization)
  Sender: FDA-Public Use
  Company Number: GB-WATSON-2014-18698

PATIENT
  Age: 62 Year
  Sex: Female
  Weight: 48 kg

DRUGS (4)
  1. PARACETAMOL [Concomitant]
     Active Substance: ACETAMINOPHEN
     Indication: PRODUCT USED FOR UNKNOWN INDICATION
     Dosage: 1G, PRN. FOUR TIMES DAILY
     Route: 065
  2. CLEXANE [Suspect]
     Active Substance: ENOXAPARIN SODIUM
     Indication: THROMBOSIS PROPHYLAXIS
     Dosage: 40 MG, QHS. 40MG/0.4ML SOLUTION FOR INJECTION PRE-FILLED SYRING (EVENING 5:30PM-7PM)
     Route: 058
  3. LANSOPRAZOLE. [Concomitant]
     Active Substance: LANSOPRAZOLE
     Indication: PRODUCT USED FOR UNKNOWN INDICATION
     Dosage: 30 MG,QAM LONG TERM
     Route: 048
  4. NAPROXEN (UNKNOWN) [Suspect]
     Active Substance: NAPROXEN
     Indication: PAIN
     Dosage: 500 MG, PRN. (TWICE DAILY)
     Route: 048

REACTIONS (5)
  - Haematemesis [Recovered/Resolved]
  - Flatulence [Recovered/Resolved]
  - Abdominal pain upper [Recovered/Resolved]
  - Nausea [Recovered/Resolved]
  - Malaise [Recovered/Resolved]
